FAERS Safety Report 18040938 (Version 1)
Quarter: 2020Q3

REPORT INFORMATION
  Report Type: Spontaneous
  Country: US (occurrence: US)
  Receive Date: 20200717
  Receipt Date: 20200717
  Transmission Date: 20201103
  Serious: No
  Sender: FDA-Public Use
  Company Number: US-AMAG PHARMACEUTICALS, INC.-AMAG202002458

PATIENT
  Age: 66 Year
  Sex: Male

DRUGS (1)
  1. FERAHEME [Suspect]
     Active Substance: FERUMOXYTOL NON-STOICHIOMETRIC MAGNETITE
     Indication: MAGNETIC RESONANCE IMAGING
     Route: 042

REACTIONS (7)
  - Burning sensation [Unknown]
  - Scleral disorder [Unknown]
  - Paraesthesia [Unknown]
  - Dyspnoea [Recovered/Resolved]
  - Off label use [Unknown]
  - Back pain [Recovered/Resolved]
  - Nausea [Recovered/Resolved]
